FAERS Safety Report 21999585 (Version 1)
Quarter: 2023Q1

REPORT INFORMATION
  Report Type: Report from Study
  Country: AT (occurrence: AT)
  Receive Date: 20230216
  Receipt Date: 20230216
  Transmission Date: 20230418
  Serious: Yes (Other)
  Sender: FDA-Public Use
  Company Number: AT-ABBVIE-4308094

PATIENT
  Sex: Female

DRUGS (1)
  1. HUMIRA [Suspect]
     Active Substance: ADALIMUMAB
     Indication: Crohn^s disease
     Route: 058
     Dates: start: 2007

REACTIONS (5)
  - Ileus [Not Recovered/Not Resolved]
  - Trigeminal neuralgia [Recovered/Resolved with Sequelae]
  - Cardiac valve disease [Not Recovered/Not Resolved]
  - Stenosis [Not Recovered/Not Resolved]
  - Herpes zoster [Recovered/Resolved with Sequelae]
